FAERS Safety Report 6275894-8 (Version None)
Quarter: 2009Q3

REPORT INFORMATION
  Report Type: 
  Country: None (occurrence: None)
  Receive Date: 20090720
  Receipt Date: 20090709
  Transmission Date: 20100115
  Serious: Yes (Disabling, Other)
  Sender: FDA-Public Use
  Company Number: 2009-00043

PATIENT
  Age: 52 Year
  Sex: Female
  Weight: 63.9 kg

DRUGS (3)
  1. VELCADE [Suspect]
     Indication: MULTIPLE MYELOMA
     Dosage: 1.3 MG/M2, IV BOLUS
     Route: 040
     Dates: start: 20070301, end: 20081210
  2. CYTOXAN [Suspect]
     Indication: MULTIPLE MYELOMA
     Dosage: 750 MG/M2
     Dates: start: 20080702
  3. DEXAMETHASONE TAB [Suspect]
     Indication: MULTIPLE MYELOMA
     Dosage: 40 MG
     Dates: start: 20061213

REACTIONS (3)
  - DEAFNESS UNILATERAL [None]
  - EAR PAIN [None]
  - TOOTHACHE [None]
